FAERS Safety Report 15785413 (Version 1)
Quarter: 2019Q1

REPORT INFORMATION
  Report Type: Spontaneous
  Country: US (occurrence: US)
  Receive Date: 20190102
  Receipt Date: 20190102
  Transmission Date: 20190417
  Serious: No
  Sender: FDA-Public Use
  Company Number: None

PATIENT
  Age: 66 Year
  Sex: Female

DRUGS (1)
  1. LEVOTHYROXINE. [Suspect]
     Active Substance: LEVOTHYROXINE
     Route: 048
     Dates: start: 20181108, end: 20181130

REACTIONS (5)
  - Product substitution issue [None]
  - Dyspnoea [None]
  - Enlarged uvula [None]
  - Product solubility abnormal [None]
  - Product odour abnormal [None]

NARRATIVE: CASE EVENT DATE: 20181130
